FAERS Safety Report 7907137-0 (Version None)
Quarter: 2011Q4

REPORT INFORMATION
  Report Type: 
  Country: None (occurrence: None)
  Receive Date: 20111110
  Receipt Date: 20110826
  Transmission Date: 20120403
  Serious: Yes (Other)
  Sender: FDA-Public Use
  Company Number: US-ASTRAZENECA-2009UW06093

PATIENT
  Age: 58 Year
  Sex: Male

DRUGS (3)
  1. LISINOPRIL [Suspect]
     Route: 048
  2. TOPROL-XL [Suspect]
     Route: 048
  3. PLAVIX [Concomitant]

REACTIONS (7)
  - ARTHRITIS [None]
  - MYOCARDIAL INFARCTION [None]
  - SLEEP APNOEA SYNDROME [None]
  - INSOMNIA [None]
  - PLANTAR FASCIITIS [None]
  - DRUG INTOLERANCE [None]
  - OEDEMA PERIPHERAL [None]
